FAERS Safety Report 5740382-1 (Version None)
Quarter: 2008Q2

REPORT INFORMATION
  Report Type: 
  Country: None (occurrence: None)
  Receive Date: 20080513
  Receipt Date: 20080429
  Transmission Date: 20081010
  Serious: Yes (Hospitalization)
  Sender: FDA-Public Use
  Company Number: VNL_01076_2008

PATIENT
  Sex: Male

DRUGS (3)
  1. APO-GO (APO-GO AMPOULES 10 MG/ML SOLUTION FOR INJECTION - APOMORPHINE [Suspect]
     Indication: PARKINSON'S DISEASE
     Dosage: (8 MG PER HOUR FOR 4 MONTHS SUBCUTANEOUS)
     Route: 058
     Dates: start: 20071201, end: 20080415
  2. APO-GO (APO-GO AMPOULES 10 MG/ML SOLUTION FOR INJECTION - APOMORPHINE [Suspect]
     Indication: PARKINSON'S DISEASE
     Dosage: (DF FOR SUBCUTANEOUS)
     Route: 058
     Dates: start: 20080415
  3. AMANTADINE HCL [Suspect]
     Indication: PARKINSON'S DISEASE
     Dosage: (150 MG BID)

REACTIONS (3)
  - HALLUCINATION, VISUAL [None]
  - MANIA [None]
  - PSYCHOTIC DISORDER [None]
